FAERS Safety Report 20318849 (Version 1)
Quarter: 2022Q1

REPORT INFORMATION
  Report Type: Spontaneous
  Country: US (occurrence: US)
  Receive Date: 20220110
  Receipt Date: 20220110
  Transmission Date: 20220423
  Serious: Yes (Other)
  Sender: FDA-Public Use
  Company Number: US-FRESENIUS KABI-FK202200233

PATIENT
  Age: 76 Year
  Sex: Female
  Weight: 65 kg

DRUGS (25)
  1. FLUDARABINE [Suspect]
     Active Substance: FLUDARABINE PHOSPHATE
     Indication: Follicular lymphoma
     Dosage: 50 MG X 1 X 1 DAYS
     Route: 042
     Dates: start: 20201113, end: 20201113
  2. FLUDARABINE [Suspect]
     Active Substance: FLUDARABINE PHOSPHATE
     Dosage: 50 MG X 1 X 1 DAYS, 1 IN 1 D
     Route: 042
     Dates: start: 20201114, end: 20201114
  3. FLUDARABINE [Suspect]
     Active Substance: FLUDARABINE PHOSPHATE
     Dosage: 50 MG X 1 X 1 DAYS, 1 IN 1 D
     Route: 042
     Dates: start: 20201115, end: 20201115
  4. LISOCABTAGENE MARALEUCEL [Suspect]
     Active Substance: LISOCABTAGENE MARALEUCEL
     Indication: Follicular lymphoma
     Dosage: (100 X 10^6 CAR+ T CELLS X ONCE)?JCAR017 (LISOCABTAGENE MARALEUCEL)
     Route: 042
     Dates: start: 20201118, end: 20201118
  5. CYCLOPHOSPHAMIDE [Suspect]
     Active Substance: CYCLOPHOSPHAMIDE
     Indication: Follicular lymphoma
     Dosage: 496 MG X 1 X 1 DAYS
     Route: 042
     Dates: start: 20201113, end: 20201113
  6. CYCLOPHOSPHAMIDE [Suspect]
     Active Substance: CYCLOPHOSPHAMIDE
     Dosage: 496 MG X 1 X 1 DAYS, 1 IN 1 D
     Route: 042
     Dates: start: 20201114, end: 20201114
  7. CYCLOPHOSPHAMIDE [Suspect]
     Active Substance: CYCLOPHOSPHAMIDE
     Dosage: 496 MG X 1 X 1 DAYS, 1 IN 1 D
     Route: 042
     Dates: start: 20201115, end: 20201115
  8. ACYCLOVIR [Concomitant]
     Active Substance: ACYCLOVIR
     Indication: Prophylaxis
     Dosage: 400 MG X 2 X 1 DAYS?ONGOING
     Route: 048
     Dates: start: 20191226
  9. ACYCLOVIR [Concomitant]
     Active Substance: ACYCLOVIR
     Dosage: 800 MG X 2 X 1 DAYS?ONGOING
     Route: 048
     Dates: start: 20201214
  10. AZITHROMYCIN [Concomitant]
     Active Substance: AZITHROMYCIN
     Indication: Prophylaxis
     Dosage: 500 MG X 1 X 1 DAYS
     Route: 042
     Dates: start: 20210128, end: 20210201
  11. SULFAMETHOXAZOLE\TRIMETHOPRIM [Concomitant]
     Active Substance: SULFAMETHOXAZOLE\TRIMETHOPRIM
     Indication: Prophylaxis
     Dosage: 800-160 MG X UNKNOWN, UNKNOWN?ONGOING
     Route: 048
     Dates: start: 20201224
  12. CEFEPIME [Concomitant]
     Active Substance: CEFEPIME HYDROCHLORIDE
     Indication: Prophylaxis
     Dosage: 2000 MG X 1 X 12 HOURS
     Route: 042
     Dates: start: 20210128, end: 20210201
  13. CITALOPRAM HYDROBROMIDE [Concomitant]
     Active Substance: CITALOPRAM HYDROBROMIDE
     Indication: Depression
     Dosage: 40 MG X 1 X 1 DAYS?ONGOING
     Route: 048
     Dates: start: 20200611
  14. FLUCONAZOLE [Concomitant]
     Active Substance: FLUCONAZOLE
     Indication: Prophylaxis
     Dosage: 400 MG X 1 X 1 DAYS?ONGOING
     Route: 048
     Dates: start: 20201202
  15. LEVETIRACETAM [Concomitant]
     Active Substance: LEVETIRACETAM
     Indication: Prophylaxis
     Dosage: 500 MG X 2 X 1 DAYS?ONGOING
     Route: 048
     Dates: start: 20201121
  16. MAGNESIUM [Concomitant]
     Active Substance: MAGNESIUM
     Indication: Supplementation therapy
     Dosage: ONGOING
     Route: 048
     Dates: start: 20190306
  17. PRAMIPEXOLE DIHYDROCHLORIDE [Concomitant]
     Active Substance: PRAMIPEXOLE DIHYDROCHLORIDE
     Indication: Restless legs syndrome
     Dosage: 0.125 - 0.25 MG X 1 X 1 DAYS?ONGOING
     Route: 048
     Dates: start: 20200417
  18. VITAMINS NOS [Concomitant]
     Active Substance: VITAMINS
     Indication: Supplementation therapy
     Dosage: ONGOING
     Route: 048
     Dates: start: 20200402
  19. OMEPRAZOLE [Concomitant]
     Active Substance: OMEPRAZOLE
     Indication: Gastrooesophageal reflux disease
     Dosage: 20 MG X 1 X 1 DAYS?ONGOING
     Route: 048
     Dates: start: 20200610
  20. VANCOMYCIN [Concomitant]
     Active Substance: VANCOMYCIN
     Indication: Prophylaxis
     Dosage: 1000 MG X 1 X 12 HOURS
     Route: 042
     Dates: start: 20210128, end: 20210131
  21. CHOLECALCIFEROL [Concomitant]
     Active Substance: CHOLECALCIFEROL
     Indication: Supplementation therapy
     Dosage: 600 MG X 1 X 1 DAYS?ONGOING
     Route: 048
     Dates: start: 20180404
  22. CHOLECALCIFEROL [Concomitant]
     Active Substance: CHOLECALCIFEROL
     Dosage: 600 MG X 1 X 1 DAYS
     Route: 048
     Dates: start: 20201202, end: 20210128
  23. ALPRAZOLAM [Concomitant]
     Active Substance: ALPRAZOLAM
     Indication: Anxiety
     Dosage: 0.25 MG X 1 X 1 DAYS?ONGOING
     Route: 048
     Dates: start: 20131230
  24. ONDANSETRON [Concomitant]
     Active Substance: ONDANSETRON
     Indication: Nausea
     Dosage: 4 MG X 2 X 1 DAYS?ONGOING
     Route: 048
     Dates: start: 20191010
  25. ACETAMINOPHEN [Concomitant]
     Active Substance: ACETAMINOPHEN
     Indication: Febrile neutropenia
     Dosage: 1000 MG X 1 X 1 DAYS
     Route: 048
     Dates: start: 20210128, end: 20210129

REACTIONS (1)
  - Acute myeloid leukaemia [Not Recovered/Not Resolved]

NARRATIVE: CASE EVENT DATE: 20210201
